FAERS Safety Report 9383908 (Version 1)
Quarter: 2013Q3

REPORT INFORMATION
  Report Type: Spontaneous
  Country: JP (occurrence: JP)
  Receive Date: 20130705
  Receipt Date: 20130705
  Transmission Date: 20140515
  Serious: No
  Sender: FDA-Public Use
  Company Number: JP-SUCAMPO PHARMA AMERICAS, INC-SPI201300470

PATIENT
  Age: 76 Year
  Sex: Female

DRUGS (6)
  1. AMITIZA [Suspect]
     Indication: CONSTIPATION
     Dosage: 24 MCG, BID
     Route: 048
     Dates: start: 20130624, end: 20130624
  2. SENNARIDE [Concomitant]
     Dosage: UNK
     Route: 048
  3. EBRANTIL [Concomitant]
     Dosage: UNK
     Route: 048
  4. MUCOSTA [Concomitant]
     Dosage: 100 MG, UNK
     Route: 048
  5. UBRETID [Concomitant]
     Dosage: UNK
     Route: 048
  6. TAKEPRON OD [Concomitant]
     Dosage: 15 MG, QD
     Route: 048

REACTIONS (2)
  - Chest discomfort [Recovered/Resolved]
  - Nausea [Recovered/Resolved]
